FAERS Safety Report 6796305-X (Version None)
Quarter: 2010Q2

REPORT INFORMATION
  Report Type: 
  Country: None (occurrence: None)
  Receive Date: 20100624
  Receipt Date: 20100624
  Transmission Date: 20101027
  Serious: Yes (Other)
  Sender: FDA-Public Use
  Company Number: None

PATIENT
  Age: 50 Year
  Sex: Female
  Weight: 57.1532 kg

DRUGS (2)
  1. HUMULIN 70/30 [Suspect]
     Indication: DIABETES MELLITUS
     Dosage: A.M. 22 PM 25 1X ARM
     Dates: start: 20100524
  2. HUMULIN 70/30 [Suspect]

REACTIONS (6)
  - BLOOD GLUCOSE INCREASED [None]
  - DRUG DISPENSING ERROR [None]
  - EXPIRED DRUG ADMINISTERED [None]
  - LIQUID PRODUCT PHYSICAL ISSUE [None]
  - MALAISE [None]
  - PRODUCT ODOUR ABNORMAL [None]
